FAERS Safety Report 19740075 (Version 1)
Quarter: 2021Q3

REPORT INFORMATION
  Report Type: Report from Study
  Country: US (occurrence: US)
  Receive Date: 20210824
  Receipt Date: 20210824
  Transmission Date: 20211014
  Serious: Yes (Hospitalization, Other)
  Sender: FDA-Public Use
  Company Number: US-EMD SERONO-9256684

PATIENT
  Age: 68 Year
  Sex: Female

DRUGS (3)
  1. REBIF [Suspect]
     Active Substance: INTERFERON BETA-1A
     Indication: MULTIPLE SCLEROSIS
     Dosage: REBIF PREFILLED SYRINGE
     Route: 058
     Dates: start: 20210419
  2. ADVIL (MEFENAMIC ACID) [Suspect]
     Active Substance: MEFENAMIC ACID
     Indication: PAIN
     Route: 048
  3. REBIF [Suspect]
     Active Substance: INTERFERON BETA-1A
     Route: 058
     Dates: start: 202105

REACTIONS (7)
  - Renal failure [Recovered/Resolved]
  - Urinary retention [Recovering/Resolving]
  - Hospitalisation [Unknown]
  - Myocardial infarction [Recovering/Resolving]
  - Disease complication [Recovered/Resolved]
  - Urinary tract infection [Recovering/Resolving]
  - Pain [Unknown]

NARRATIVE: CASE EVENT DATE: 202105
